FAERS Safety Report 6551541-2 (Version None)
Quarter: 2010Q1

REPORT INFORMATION
  Report Type: 
  Country: None (occurrence: None)
  Receive Date: 20100126
  Receipt Date: 20100118
  Transmission Date: 20100710
  Serious: Yes (Other)
  Sender: FDA-Public Use
  Company Number: PHHY2010BR03197

PATIENT
  Sex: Male
  Weight: 58 kg

DRUGS (3)
  1. EXELON [Suspect]
     Indication: MEMORY IMPAIRMENT
     Dosage: 1.5 MG, QD
     Route: 048
     Dates: start: 20080101
  2. EXELON [Suspect]
     Indication: AGGRESSION
  3. PHENAZOPYRIDINE HCL TAB [Concomitant]
     Dosage: 200 MG, TID
     Route: 048
     Dates: start: 20090101

REACTIONS (4)
  - INSOMNIA [None]
  - PROSTATE CANCER [None]
  - PRURITUS GENERALISED [None]
  - SKIN HAEMORRHAGE [None]
